FAERS Safety Report 5977294-4 (Version None)
Quarter: 2008Q4

REPORT INFORMATION
  Report Type: 
  Country: None (occurrence: None)
  Receive Date: 20081201
  Receipt Date: 20081201
  Transmission Date: 20090506
  Serious: Yes (Other)
  Sender: FDA-Public Use
  Company Number: None

PATIENT
  Age: 57 Year
  Sex: Female
  Weight: 63.5036 kg

DRUGS (1)
  1. ORACEA [Suspect]
     Indication: DRY EYE
     Dosage: 1 IN AM
     Dates: start: 20080922, end: 20081015

REACTIONS (6)
  - DIARRHOEA [None]
  - HEART RATE INCREASED [None]
  - HEART RATE IRREGULAR [None]
  - HOT FLUSH [None]
  - HYPERTENSION [None]
  - MIGRAINE [None]
